FAERS Safety Report 5170561-6 (Version None)
Quarter: 2006Q4

REPORT INFORMATION
  Report Type: 
  Country: None (occurrence: None)
  Receive Date: 20061204
  Receipt Date: 20061117
  Transmission Date: 20070319
  Serious: Yes (Other)
  Sender: FDA-Public Use
  Company Number: ENT 2006-0163

PATIENT
  Age: 83 Year
  Sex: Male

DRUGS (2)
  1. COMTAN [Suspect]
     Dosage: ORAL
     Route: 048
     Dates: start: 20061010
  2. LEVODOPA [Concomitant]

REACTIONS (2)
  - HALLUCINATION [None]
  - POOR QUALITY SLEEP [None]
